FAERS Safety Report 5003941-X (Version None)
Quarter: 2006Q2

REPORT INFORMATION
  Report Type: 
  Country: None (occurrence: None)
  Receive Date: 20060517
  Receipt Date: 20060504
  Transmission Date: 20061013
  Serious: Yes (Life-Threatening)
  Sender: FDA-Public Use
  Company Number: FR-SANOFI-SYNTHELABO-A02200601186

PATIENT
  Age: 65 Year
  Sex: Female

DRUGS (6)
  1. PLAVIX [Suspect]
     Indication: STENT PLACEMENT
     Route: 048
     Dates: start: 20050722, end: 20050801
  2. CARDENSIEL [Concomitant]
     Indication: HYPERTENSION
     Route: 048
     Dates: start: 20050722, end: 20050727
  3. CRESTOR [Concomitant]
     Indication: DYSLIPIDAEMIA
     Route: 048
     Dates: start: 20050721
  4. LASILIX [Concomitant]
     Indication: HYPERTENSION
     Dosage: 80 MG
     Route: 048
     Dates: start: 20050722, end: 20050728
  5. TRIATEC [Concomitant]
     Indication: HYPERTENSION
     Route: 048
     Dates: start: 20050723
  6. ASPIRIN [Concomitant]
     Indication: STENT PLACEMENT
     Route: 048
     Dates: start: 20050722

REACTIONS (3)
  - CARDIO-RESPIRATORY ARREST [None]
  - DRUG RESISTANCE [None]
  - STENT OCCLUSION [None]
